FAERS Safety Report 8253192-0 (Version None)
Quarter: 2012Q2

REPORT INFORMATION
  Report Type: 
  Country: None (occurrence: None)
  Receive Date: 20120402
  Receipt Date: 20120307
  Transmission Date: 20120825
  Serious: No
  Sender: FDA-Public Use
  Company Number: US-AMGEN-USASP2012015106

PATIENT
  Age: 60 Year
  Sex: Female

DRUGS (3)
  1. TREXALL [Concomitant]
     Dosage: UNK
     Dates: start: 20110901
  2. PREDNISONE TAB [Concomitant]
     Dosage: UNK
  3. ENBREL [Suspect]
     Indication: RHEUMATOID ARTHRITIS
     Dosage: 50 MG, QWK
     Dates: start: 20111214

REACTIONS (1)
  - JOINT SWELLING [None]
